FAERS Safety Report 23977375 (Version 1)
Quarter: 2024Q2

REPORT INFORMATION
  Report Type: Spontaneous
  Country: US (occurrence: None)
  Receive Date: 20240614
  Receipt Date: 20240614
  Transmission Date: 20240716
  Serious: No
  Sender: FDA-Public Use
  Company Number: None

PATIENT
  Age: 59 Year
  Sex: Male
  Weight: 78 kg

DRUGS (2)
  1. ROCURONIUM [Suspect]
     Active Substance: ROCURONIUM BROMIDE
     Indication: Accidental exposure to product
     Dosage: 50 MG ONCE INTRAVENOUS
     Route: 040
     Dates: start: 20240515, end: 20240515
  2. LIDOCAINE [Suspect]
     Active Substance: LIDOCAINE
     Dosage: 50 MG ONCE INTRAVENOUS?
     Route: 042

REACTIONS (3)
  - Procedural complication [None]
  - Apnoea [None]
  - Wrong product administered [None]

NARRATIVE: CASE EVENT DATE: 20240515
